FAERS Safety Report 10621713 (Version 3)
Quarter: 2015Q1

REPORT INFORMATION
  Report Type: Report from Study
  Country: FR (occurrence: FR)
  Receive Date: 20141203
  Receipt Date: 20150209
  Transmission Date: 20150720
  Serious: No
  Sender: FDA-Public Use
  Company Number: PHHY2014FR157167

PATIENT
  Sex: Female

DRUGS (1)
  1. AMN107 [Suspect]
     Active Substance: NILOTINIB
     Indication: CHRONIC MYELOID LEUKAEMIA
     Route: 048

REACTIONS (8)
  - Osteoarthritis [Recovering/Resolving]
  - Nausea [Unknown]
  - Vomiting [Unknown]
  - Intervertebral disc disorder [Recovering/Resolving]
  - Syncope [Unknown]
  - Neurogenic shock [Recovered/Resolved]
  - Dizziness [Unknown]
  - Asthenia [Unknown]

NARRATIVE: CASE EVENT DATE: 2014
